FAERS Safety Report 17493095 (Version 1)
Quarter: 2020Q1

REPORT INFORMATION
  Report Type: Spontaneous
  Country: US (occurrence: US)
  Receive Date: 20190917
  Receipt Date: 20190917
  Transmission Date: 20200409
  Serious: Yes (Hospitalization)
  Sender: FDA-Public Use
  Company Number: None

PATIENT
  Age: 37 Year
  Sex: Male

DRUGS (6)
  1. NAPROXEN. [Concomitant]
     Active Substance: NAPROXEN
  2. VIIBRYD [Concomitant]
     Active Substance: VILAZODONE HYDROCHLORIDE
  3. THC [Concomitant]
     Active Substance: DRONABINOL
  4. GABAPENTIN. [Concomitant]
     Active Substance: GABAPENTIN
  5. CLAW VAPE PEN ^THE POD^ ORANGE KUSH OIL STIX (CANNABIS OIL) [Suspect]
     Active Substance: CANNABIS SATIVA SEED OIL\DEVICE\HERBALS
  6. PREDNISONE. [Concomitant]
     Active Substance: PREDNISONE

REACTIONS (5)
  - Chest pain [None]
  - Nausea [None]
  - Dyspnoea [None]
  - Vomiting [None]
  - Diarrhoea [None]
